FAERS Safety Report 9690290 (Version 1)
Quarter: 2013Q4

REPORT INFORMATION
  Report Type: Spontaneous
  Country: US (occurrence: None)
  Receive Date: 20131114
  Receipt Date: 20131114
  Transmission Date: 20140711
  Serious: Yes (Hospitalization)
  Sender: FDA-Public Use
  Company Number: None

PATIENT
  Sex: Female

DRUGS (2)
  1. CYTARABINE [Suspect]
     Dates: end: 20110411
  2. DAUNORUBICIN [Suspect]
     Dates: end: 20110407

REACTIONS (8)
  - Nervous system disorder [None]
  - Unresponsive to stimuli [None]
  - Pancytopenia [None]
  - Posterior reversible encephalopathy syndrome [None]
  - Stenotrophomonas test positive [None]
  - Fungal test positive [None]
  - Device related infection [None]
  - Febrile neutropenia [None]
